FAERS Safety Report 10231496 (Version 2)
Quarter: 2014Q2

REPORT INFORMATION
  Report Type: Spontaneous
  Country: ES (occurrence: ES)
  Receive Date: 20140611
  Receipt Date: 20140611
  Transmission Date: 20141212
  Serious: Yes (Other)
  Sender: FDA-Public Use
  Company Number: ES-KOWA-2014S1000482

PATIENT
  Sex: Male

DRUGS (1)
  1. LIVAZO [Suspect]
     Indication: HYPERCHOLESTEROLAEMIA
     Dosage: UNIT CONT:U UNKNOWN
     Dates: start: 20140408

REACTIONS (2)
  - Diplopia [Unknown]
  - Ophthalmoplegia [Unknown]
